FAERS Safety Report 7508096-5 (Version None)
Quarter: 2011Q2

REPORT INFORMATION
  Report Type: 
  Country: None (occurrence: None)
  Receive Date: 20110527
  Receipt Date: 20110121
  Transmission Date: 20111010
  Serious: Yes (Hospitalization, Other)
  Sender: FDA-Public Use
  Company Number: US-BAYER-201018276NA

PATIENT
  Age: 31 Year
  Sex: Female
  Weight: 50.794 kg

DRUGS (7)
  1. YAZ [Suspect]
     Indication: ORAL CONTRACEPTION
     Dosage: UNK
     Route: 048
     Dates: start: 20070801, end: 20090501
  2. IBUPROFEN [Concomitant]
     Dosage: UNK UNK, PRN
  3. ASCORBIC ACID [Concomitant]
     Dosage: UNK
     Dates: start: 20000101
  4. ANTIBIOTICS [Concomitant]
     Dosage: UNK UNK, PRN
     Dates: start: 20020101
  5. LEVSIN [Concomitant]
  6. NEXIUM [Concomitant]
  7. YASMIN [Suspect]
     Indication: ORAL CONTRACEPTION
     Dosage: UNK
     Route: 048
     Dates: start: 20060101, end: 20070501

REACTIONS (3)
  - ABDOMINAL PAIN UPPER [None]
  - HEPATOBILIARY SCAN ABNORMAL [None]
  - GALLBLADDER DISORDER [None]
